FAERS Safety Report 10151038 (Version 1)
Quarter: 2014Q2

REPORT INFORMATION
  Report Type: Spontaneous
  Country: US (occurrence: US)
  Receive Date: 20140502
  Receipt Date: 20140502
  Transmission Date: 20141212
  Serious: No
  Sender: FDA-Public Use
  Company Number: US-TEVA-475979USA

PATIENT
  Sex: Female
  Weight: 93.07 kg

DRUGS (4)
  1. PROVIGIL [Suspect]
     Indication: FATIGUE
     Dates: start: 2009, end: 2013
  2. PROVIGIL [Suspect]
     Dates: start: 2014
  3. BLOOD PRESSURE MEDICATION [Suspect]
  4. GLIPIZIDE [Concomitant]
     Indication: DIABETES MELLITUS

REACTIONS (6)
  - Somnolence [Recovered/Resolved]
  - Drug effect increased [Recovered/Resolved]
  - Adverse event [Recovered/Resolved]
  - Headache [Recovered/Resolved]
  - Somnolence [Recovered/Resolved]
  - Off label use [Recovered/Resolved]
